FAERS Safety Report 9075004 (Version 1)
Quarter: 2013Q1

REPORT INFORMATION
  Report Type: Spontaneous
  Country: US (occurrence: US)
  Receive Date: 20130129
  Receipt Date: 20130129
  Transmission Date: 20140127
  Serious: No
  Sender: FDA-Public Use
  Company Number: US-BAUSCH-2012BL003842

PATIENT
  Age: 44 Year
  Sex: Female

DRUGS (2)
  1. ZYLET (LOTEPREDNOL ETABONATE 0.5% AND TOBRAMYCIN 0.3% OPHTHALMIC SUSPE [Suspect]
     Indication: CONJUNCTIVITIS
     Dosage: 1 DROP INTO EACH EYE THREE TIMES ONLY
     Route: 047
     Dates: start: 20120608, end: 20120608
  2. CARMELLOSE [Concomitant]
     Indication: EYE LUBRICATION THERAPY

REACTIONS (1)
  - Eyelid oedema [Recovering/Resolving]
